FAERS Safety Report 8552282-2 (Version None)
Quarter: 2012Q3

REPORT INFORMATION
  Report Type: 
  Country: None (occurrence: None)
  Receive Date: 20120718
  Receipt Date: 20120704
  Transmission Date: 20120928
  Serious: Yes (Other)
  Sender: FDA-Public Use
  Company Number: 1341014

PATIENT
  Age: 3 Year
  Sex: Male
  Weight: 7.0217 kg

DRUGS (1)
  1. PAMIDRONATE DISODIUM [Suspect]
     Indication: OSTEOGENESIS IMPERFECTA
     Dosage: 1.5 MG/KG FOR 2 DAYS, 3 MONTH, INTRAVENOUS ( NOT OTHERWISE SPEICIFIED)
     Route: 042

REACTIONS (2)
  - PARONYCHIA [None]
  - CELLULITIS [None]
